FAERS Safety Report 10283230 (Version 2)
Quarter: 2014Q3

REPORT INFORMATION
  Report Type: Spontaneous
  Country: DK (occurrence: DK)
  Receive Date: 20140708
  Receipt Date: 20140922
  Transmission Date: 20150326
  Serious: Yes (Hospitalization, Other)
  Sender: FDA-Public Use
  Company Number: DK-ELI_LILLY_AND_COMPANY-DK201406009726

PATIENT
  Age: 40 Year
  Sex: Male

DRUGS (1)
  1. ZYPADHERA [Suspect]
     Active Substance: OLANZAPINE PAMOATE
     Indication: SCHIZOPHRENIA, PARANOID TYPE
     Dosage: 405 MG, EVERY 14 DAYS
     Route: 030
     Dates: start: 20130919

REACTIONS (7)
  - Psychomotor hyperactivity [Unknown]
  - Abnormal behaviour [Unknown]
  - Delirium [Recovered/Resolved]
  - Confusional state [Recovered/Resolved]
  - Overdose [Unknown]
  - Hyperhidrosis [Unknown]
  - Restlessness [Recovered/Resolved]

NARRATIVE: CASE EVENT DATE: 20140625
